FAERS Safety Report 9016243 (Version 2)
Quarter: 2013Q1

REPORT INFORMATION
  Report Type: Spontaneous
  Country: AU (occurrence: AU)
  Receive Date: 20130116
  Receipt Date: 20130205
  Transmission Date: 20140127
  Serious: Yes (Life-Threatening, Hospitalization)
  Sender: FDA-Public Use
  Company Number: AU-B.I. PHARMACEUTICALS,INC./RIDGEFIELD-2013-AU-00019AU

PATIENT
  Age: 78 Year
  Sex: Male
  Weight: 115 kg

DRUGS (7)
  1. PRADAXA [Suspect]
     Indication: ATRIAL FIBRILLATION
     Dosage: 220 MG
     Dates: start: 20111114, end: 201301
  2. DIAMICRON [Concomitant]
  3. COVERSYL [Concomitant]
  4. SPIRIVA [Concomitant]
  5. LASIX [Concomitant]
  6. DIABEX [Concomitant]
  7. SYMBICORT [Concomitant]

REACTIONS (4)
  - Gastrointestinal haemorrhage [Recovered/Resolved with Sequelae]
  - Haematemesis [Recovered/Resolved with Sequelae]
  - Melaena [Recovered/Resolved with Sequelae]
  - Syncope [Unknown]
